FAERS Safety Report 12163834 (Version 3)
Quarter: 2016Q2

REPORT INFORMATION
  Report Type: Spontaneous
  Country: US (occurrence: US)
  Receive Date: 20160309
  Receipt Date: 20160429
  Transmission Date: 20160815
  Serious: No
  Sender: FDA-Public Use
  Company Number: US-ELI_LILLY_AND_COMPANY-US201602003766

PATIENT
  Age: 58 Year
  Sex: Male

DRUGS (2)
  1. HUMALOG [Suspect]
     Active Substance: INSULIN LISPRO
     Dosage: UNK UNK, EVERY 4 HRS
     Route: 058
  2. HUMALOG [Suspect]
     Active Substance: INSULIN LISPRO
     Indication: TYPE 1 DIABETES MELLITUS
     Dosage: UNK UNK, EVERY 4 HRS
     Route: 058
     Dates: start: 201302

REACTIONS (3)
  - Blood glucose increased [Unknown]
  - Infusion site pain [Unknown]
  - Stiff person syndrome [Unknown]

NARRATIVE: CASE EVENT DATE: 20160119
